FAERS Safety Report 9959067 (Version 1)
Quarter: 2014Q1

REPORT INFORMATION
  Report Type: Report from Study
  Country: US (occurrence: US)
  Receive Date: 20140305
  Receipt Date: 20140305
  Transmission Date: 20141002
  Serious: Yes (Other)
  Sender: FDA-Public Use
  Company Number: US-ABBVIE-13P-163-1104430-00

PATIENT
  Age: 61 Year
  Sex: Female

DRUGS (13)
  1. HUMIRA [Suspect]
     Indication: CROHN^S DISEASE
     Dates: start: 201304
  2. FISH OIL [Concomitant]
     Indication: PRODUCT USED FOR UNKNOWN INDICATION
  3. VITAMIN B12 [Concomitant]
     Indication: PRODUCT USED FOR UNKNOWN INDICATION
  4. MULTIVITAMIN WITH VITAMIN D [Concomitant]
     Indication: PRODUCT USED FOR UNKNOWN INDICATION
  5. DILANTIN [Concomitant]
     Indication: CONVULSION
  6. PHENOBARBITAL [Concomitant]
     Indication: CONVULSION
  7. RECLAST [Concomitant]
     Indication: OSTEOPOROSIS
  8. NEXIUM [Concomitant]
     Indication: ABDOMINAL DISCOMFORT
  9. MEXAPEPUR [Concomitant]
     Indication: CROHN^S DISEASE
  10. ALIGN PROBIOTIC [Concomitant]
     Indication: CROHN^S DISEASE
  11. CHOLESTEROL [Concomitant]
     Indication: PRODUCT USED FOR UNKNOWN INDICATION
  12. DRISDOL [Concomitant]
     Indication: CROHN^S DISEASE
  13. SPIRIVA [Concomitant]
     Indication: RESPIRATORY DISORDER

REACTIONS (1)
  - Skin cancer [Recovered/Resolved]
